FAERS Safety Report 13645107 (Version 1)
Quarter: 2017Q2

REPORT INFORMATION
  Report Type: Spontaneous
  Country: US (occurrence: US)
  Receive Date: 20170612
  Receipt Date: 20170612
  Transmission Date: 20170830
  Serious: Yes (Hospitalization, Other)
  Sender: FDA-Public Use
  Company Number: US-ROCHE-1424826

PATIENT
  Sex: Female

DRUGS (1)
  1. XELODA [Suspect]
     Active Substance: CAPECITABINE
     Indication: NEOPLASM MALIGNANT
     Dosage: 500 MG, 5 TABS QD
     Route: 048
     Dates: start: 20140303, end: 20140528

REACTIONS (3)
  - Drug ineffective [Unknown]
  - Decreased appetite [Unknown]
  - Pyrexia [Recovered/Resolved]
